FAERS Safety Report 9305681 (Version 1)
Quarter: 2013Q2

REPORT INFORMATION
  Report Type: Spontaneous
  Country: DK (occurrence: None)
  Receive Date: 20130503
  Receipt Date: 20130503
  Transmission Date: 20140414
  Serious: Yes (Hospitalization)
  Sender: FDA-Public Use
  Company Number: 2013035595

PATIENT
  Age: 64 Year
  Sex: Male

DRUGS (5)
  1. PRIVIGEN (IMMUNE GLOBULIN INTRAVENOUS (HUMAN 10% LIQUID) [Suspect]
     Indication: CHRONIC INFLAMMATORY DEMYELINATING POLYRADICULONEUROPATHY
     Dosage: STRENGTH:: 100 MG/ML
     Route: 042
     Dates: start: 20130113, end: 20130117
  2. AMARYL [Concomitant]
  3. GABAPENTIN [Concomitant]
  4. LOSARTAN [Concomitant]
  5. METFORMIN [Concomitant]

REACTIONS (2)
  - Acute myocardial infarction [None]
  - Coronary artery bypass [None]
